FAERS Safety Report 9888209 (Version 2)
Quarter: 2014Q2

REPORT INFORMATION
  Report Type: Spontaneous
  Country: US (occurrence: US)
  Receive Date: 20140211
  Receipt Date: 20140516
  Transmission Date: 20141212
  Serious: Yes (Other)
  Sender: FDA-Public Use
  Company Number: US-ALEXION PHARMACEUTICALS INC.-A201400405

PATIENT
  Age: 39 Year
  Sex: Male

DRUGS (6)
  1. SOLIRIS 300MG [Suspect]
     Indication: ANTIPHOSPHOLIPID SYNDROME
     Dosage: 1200 MG, PRE-OP
     Route: 042
     Dates: start: 201002, end: 201002
  2. SOLIRIS 300MG [Suspect]
     Indication: OFF LABEL USE
     Dosage: 900 MG, POD DAY 1
     Route: 042
     Dates: start: 201002, end: 201002
  3. SOLIRIS 300MG [Suspect]
     Dosage: 900 MG, WEEKLY FOR FIRST MONTH POST OP
     Route: 042
     Dates: start: 201002
  4. SOLIRIS 300MG [Suspect]
     Dosage: 1200 MG, Q2W
     Route: 042
  5. SOLIRIS 300MG [Suspect]
     Dosage: 600 MG, POST PLASMAPHERESIS
     Route: 042
  6. COUMADIN                           /00014802/ [Concomitant]
     Indication: PROPHYLAXIS
     Dosage: UNK
     Route: 048

REACTIONS (7)
  - Antibody test positive [Unknown]
  - Necrosis ischaemic [Unknown]
  - Transplant rejection [Recovered/Resolved]
  - Haematoma [Unknown]
  - Skin necrosis [Unknown]
  - Calciphylaxis [Unknown]
  - Off label use [Unknown]
